FAERS Safety Report 10142544 (Version 2)
Quarter: 2014Q2

REPORT INFORMATION
  Report Type: Spontaneous
  Country: US (occurrence: US)
  Receive Date: 20140430
  Receipt Date: 20140622
  Transmission Date: 20141212
  Serious: Yes (Death)
  Sender: FDA-Public Use
  Company Number: US-BRISTOL-MYERS SQUIBB COMPANY-20665741

PATIENT
  Age: 66 Year
  Sex: Male
  Weight: 68.5 kg

DRUGS (20)
  1. BYETTA PEN DISPOSABLE [Suspect]
     Dosage: UP TO APPROXIMATLEY 2JUL10?250MCG/ML
     Route: 058
     Dates: start: 20090907, end: 201007
  2. ASPIRIN [Concomitant]
  3. ATRIPLA [Concomitant]
     Dosage: 1DF=600/200/300 MG.
  4. COLACE [Concomitant]
  5. COMBIVENT [Concomitant]
     Dosage: 1DF=18/13MG
  6. DILAUDID [Concomitant]
  7. DURAGESIC [Concomitant]
  8. ERGOCALCIFEROL [Concomitant]
     Dosage: 1DF=50,000 UNITS TABLETS
  9. INSULIN [Concomitant]
     Dosage: 1DF=4 UNITS?FLEXPEN
  10. LANTUS [Concomitant]
     Dosage: 1DF=25 UNITS?AT BEDTIME,
  11. LEVOTHYROXINE [Concomitant]
  12. LOMOTIL [Concomitant]
  13. NASONEX [Concomitant]
  14. PANTOPRAZOLE [Concomitant]
  15. FENTANYL PATCH [Concomitant]
  16. DOCUSATE SODIUM [Concomitant]
     Dosage: 2 TABLETS
  17. AVAPRO [Concomitant]
  18. PRAVASTATIN SODIUM [Concomitant]
  19. ALBUTEROL [Concomitant]
  20. NYSTATIN SWISH [Concomitant]
     Route: 048

REACTIONS (1)
  - Pancreatic carcinoma metastatic [Fatal]
